FAERS Safety Report 10007229 (Version 3)
Quarter: 2014Q2

REPORT INFORMATION
  Report Type: Spontaneous
  Country: DE (occurrence: DE)
  Receive Date: 20140313
  Receipt Date: 20140508
  Transmission Date: 20141212
  Serious: Yes (Other)
  Sender: FDA-Public Use
  Company Number: DE-MERCK-1403DEU004931

PATIENT
  Age: 47 Year
  Sex: Male
  Weight: 80 kg

DRUGS (6)
  1. EZETROL [Suspect]
     Indication: HYPERLIPIDAEMIA
     Dosage: TOTAL DAILY DOSE: 10MG; ONCE A DAY
     Route: 048
     Dates: start: 20140219, end: 20140303
  2. ATORVASTATIN [Concomitant]
     Indication: HYPERLIPIDAEMIA
     Dosage: TOTAL DAILY DOSE: 40MG; ONCE A DAY
     Route: 048
     Dates: start: 201401
  3. CARVEDILOL [Concomitant]
     Indication: HYPERTONIA
     Dosage: TOTAL DAILY DOSE: 12.5 MG; TWICE A DAY
     Route: 048
     Dates: start: 201312
  4. CARVEDILOL [Concomitant]
     Indication: HYPERTENSION
  5. EFIENT [Concomitant]
     Indication: HYPERTENSION
     Dosage: TOTAL DAILY DOSE: 10MG;  ONCE A DAY
     Route: 048
     Dates: start: 201312
  6. RAMIPRIL [Concomitant]
     Indication: HYPERTENSION
     Dosage: TOTAL DAILY DOSE: 2.5 MG;  ONCE A DAY
     Dates: start: 201312

REACTIONS (1)
  - Trigeminal palsy [Recovered/Resolved]
